FAERS Safety Report 8416375-2 (Version None)
Quarter: 2012Q2

REPORT INFORMATION
  Report Type: 
  Country: None (occurrence: None)
  Receive Date: 20120606
  Receipt Date: 20120529
  Transmission Date: 20120825
  Serious: Yes (Other)
  Sender: FDA-Public Use
  Company Number: US-BRISTOL-MYERS SQUIBB COMPANY-16639767

PATIENT
  Age: 61 Year
  Sex: Female
  Weight: 50 kg

DRUGS (1)
  1. ABILIFY [Suspect]
     Dates: start: 20120201

REACTIONS (5)
  - BLINDNESS [None]
  - TREMOR [None]
  - PRURITUS [None]
  - MUSCLE SPASMS [None]
  - AMNESIA [None]
